FAERS Safety Report 14329858 (Version 2)
Quarter: 2018Q1

REPORT INFORMATION
  Report Type: Spontaneous
  Country: US (occurrence: US)
  Receive Date: 20171227
  Receipt Date: 20180103
  Transmission Date: 20180509
  Serious: Yes (Hospitalization, Other)
  Sender: FDA-Public Use
  Company Number: US-PFIZER INC-2017544148

PATIENT
  Age: 61 Year
  Sex: Male

DRUGS (2)
  1. PREGABALIN. [Suspect]
     Active Substance: PREGABALIN
     Indication: NEURALGIA
     Dosage: 300 MG, 2X/DAY(APPROXIMATELY EIGHT MONTHS)
     Route: 048
  2. OXYCODONE [Concomitant]
     Active Substance: OXYCODONE
     Dosage: UNK(IMMEDIATE-RELEASE)(OVER THE LAST FEW DAYS AND UP TO A WEEK)

REACTIONS (10)
  - Drug abuse [Unknown]
  - Hypertension [Unknown]
  - Drug dependence [Unknown]
  - Drug withdrawal syndrome [Unknown]
  - Diarrhoea [Unknown]
  - Agitation [Unknown]
  - Hyperhidrosis [Unknown]
  - Tremor [Unknown]
  - Aggression [Unknown]
  - Tachycardia [Unknown]
